FAERS Safety Report 7909011-2 (Version None)
Quarter: 2011Q4

REPORT INFORMATION
  Report Type: 
  Country: None (occurrence: None)
  Receive Date: 20111111
  Receipt Date: 20111102
  Transmission Date: 20120403
  Serious: Yes (Hospitalization, Other)
  Sender: FDA-Public Use
  Company Number: PHHY2011AU85016

PATIENT
  Sex: Male

DRUGS (3)
  1. CLOZARIL [Suspect]
     Dosage: 450 MG
     Dates: start: 20021003
  2. AUGMENTIN  DF [Concomitant]
  3. ANALGESICS [Concomitant]

REACTIONS (17)
  - WHITE BLOOD CELL COUNT INCREASED [None]
  - HAEMOGLOBIN DECREASED [None]
  - NEUTROPHIL COUNT INCREASED [None]
  - CHOLECYSTITIS [None]
  - PNEUMONIA [None]
  - LUNG CONSOLIDATION [None]
  - GAMMA-GLUTAMYLTRANSFERASE INCREASED [None]
  - CHOLELITHIASIS [None]
  - INSPIRATORY CAPACITY DECREASED [None]
  - RED BLOOD CELL COUNT DECREASED [None]
  - ALANINE AMINOTRANSFERASE INCREASED [None]
  - PNEUMOTHORAX [None]
  - ACQUIRED DIAPHRAGMATIC EVENTRATION [None]
  - BLOOD ALBUMIN INCREASED [None]
  - C-REACTIVE PROTEIN INCREASED [None]
  - SINUS TACHYCARDIA [None]
  - HAEMATOCRIT DECREASED [None]
